FAERS Safety Report 9631273 (Version 1)
Quarter: 2013Q4

REPORT INFORMATION
  Report Type: Spontaneous
  Country: CA (occurrence: CA)
  Receive Date: 20131018
  Receipt Date: 20131018
  Transmission Date: 20140711
  Serious: Yes (Other)
  Sender: FDA-Public Use
  Company Number: CA-JNJFOC-20131003407

PATIENT
  Sex: Male

DRUGS (2)
  1. REMICADE [Suspect]
     Indication: PRODUCT USED FOR UNKNOWN INDICATION
     Route: 042
  2. SOLUCORTEF [Concomitant]
     Indication: PREMEDICATION
     Route: 065

REACTIONS (5)
  - Infusion related reaction [Unknown]
  - Nausea [Unknown]
  - Flushing [Unknown]
  - Dyspnoea [Unknown]
  - Throat tightness [Unknown]
